FAERS Safety Report 9398145 (Version 1)
Quarter: 2013Q3

REPORT INFORMATION
  Report Type: Spontaneous
  Country: US (occurrence: US)
  Receive Date: 20130712
  Receipt Date: 20130712
  Transmission Date: 20140515
  Serious: No
  Sender: FDA-Public Use
  Company Number: US-GLAXOSMITHKLINE-A0987566A

PATIENT
  Age: 76 Year
  Sex: Female

DRUGS (11)
  1. FLOVENT [Suspect]
     Indication: BRONCHIAL DISORDER
     Dosage: 1PUFF PER DAY
     Route: 055
     Dates: start: 20120627
  2. METFORMIN ER [Concomitant]
  3. CYCLOBENZAPRINE [Concomitant]
  4. ALLOPURINOL [Concomitant]
  5. CITALOPRAM HYDROBROMIDE [Concomitant]
  6. TRIAMTERENE [Concomitant]
  7. LEVOTHYROXINE [Concomitant]
  8. OXYBUTYNIN CHLORIDE [Concomitant]
  9. LOSARTAN [Concomitant]
  10. BABY ASPIRIN [Concomitant]
  11. PROAIR HFA [Concomitant]

REACTIONS (2)
  - Drug ineffective [Not Recovered/Not Resolved]
  - Product quality issue [Unknown]
